FAERS Safety Report 8430373-4 (Version None)
Quarter: 2012Q2

REPORT INFORMATION
  Report Type: 
  Country: None (occurrence: None)
  Receive Date: 20120612
  Receipt Date: 20120604
  Transmission Date: 20120825
  Serious: Yes (Other)
  Sender: FDA-Public Use
  Company Number: AU-ABBOTT-12P-008-0937123-00

PATIENT
  Sex: Male

DRUGS (4)
  1. HUMIRA [Suspect]
     Indication: PSORIASIS
  2. HUMIRA [Suspect]
     Indication: RHEUMATOID ARTHRITIS
     Route: 058
     Dates: start: 20110801
  3. ARAVA [Suspect]
     Indication: PSORIASIS
  4. HUMIRA [Suspect]
     Indication: PSORIATIC ARTHROPATHY

REACTIONS (10)
  - MENTAL DISORDER [None]
  - PAIN [None]
  - PSORIASIS [None]
  - DRUG INEFFECTIVE [None]
  - FOLLICULITIS [None]
  - ARTHRALGIA [None]
  - INCORRECT DOSE ADMINISTERED [None]
  - MALAISE [None]
  - POST-TRAUMATIC STRESS DISORDER [None]
  - INAPPROPRIATE SCHEDULE OF DRUG ADMINISTRATION [None]
